FAERS Safety Report 8377203-7 (Version None)
Quarter: 2012Q2

REPORT INFORMATION
  Report Type: 
  Country: None (occurrence: None)
  Receive Date: 20120522
  Receipt Date: 20120511
  Transmission Date: 20120825
  Serious: No
  Sender: FDA-Public Use
  Company Number: US-ASTRAZENECA-2012SE25350

PATIENT
  Age: 78 Year
  Sex: Male

DRUGS (3)
  1. CRESTOR [Suspect]
     Route: 048
  2. TOPROL-XL [Suspect]
     Route: 048
  3. LIPITOR [Concomitant]

REACTIONS (4)
  - ADVERSE EVENT [None]
  - GASTRIC DISORDER [None]
  - ABDOMINAL PAIN [None]
  - DYSPEPSIA [None]
